FAERS Safety Report 8798611 (Version 1)
Quarter: 2012Q4

REPORT INFORMATION
  Report Type: Report from Study
  Country: JP (occurrence: JP)
  Receive Date: 20120920
  Receipt Date: 20120920
  Transmission Date: 20130627
  Serious: Yes (Other)
  Sender: FDA-Public Use
  Company Number: JP-VERTEX PHARMACEUTICAL INC.-AE-2012-007726

PATIENT
  Age: 55 Year
  Sex: Female

DRUGS (13)
  1. VX-950 [Suspect]
     Indication: HEPATITIS C
     Dosage: 1500 mg, qd
     Route: 048
     Dates: start: 20120313
  2. VX-950 [Suspect]
     Dosage: 1000 mg, qd
     Route: 048
     Dates: start: 20120501, end: 20120513
  3. RIBAVIRIN [Suspect]
     Indication: HEPATITIS C
     Dosage: 600 mg, qd
     Route: 048
     Dates: start: 20120313, end: 20120318
  4. RIBAVIRIN [Suspect]
     Dosage: 400 mg, qd
     Route: 048
     Dates: start: 20120319, end: 20120415
  5. RIBAVIRIN [Suspect]
     Dosage: 200 mg, qd
     Route: 048
     Dates: start: 20120416, end: 20120820
  6. PEGINTERFERON ALFA-2B [Concomitant]
     Dosage: 1 ?g/kg, UNK
     Route: 058
     Dates: start: 20120313, end: 20120820
  7. LIVALO [Concomitant]
     Dosage: 1 mg, qd
     Route: 048
  8. LIVALO [Concomitant]
     Route: 048
  9. PARIET [Concomitant]
     Dosage: 10 mg, qd
     Route: 048
  10. FEROTYM [Concomitant]
     Dosage: 100 mg, qd
     Route: 048
  11. EPADEL-S [Concomitant]
     Dosage: 1800 mg, qd
     Route: 048
  12. CLARITIN REDITABS [Concomitant]
     Dosage: 10 mg, qd
     Route: 048
  13. MAGLAX [Concomitant]
     Dosage: 990 g, qd
     Route: 048

REACTIONS (4)
  - Rash [Recovered/Resolved]
  - Anaemia [Not Recovered/Not Resolved]
  - Anaemia [Not Recovered/Not Resolved]
  - Anaemia [Not Recovered/Not Resolved]
